FAERS Safety Report 11643979 (Version 1)
Quarter: 2015Q4

REPORT INFORMATION
  Report Type: Spontaneous
  Country: TR (occurrence: TR)
  Receive Date: 20151020
  Receipt Date: 20151020
  Transmission Date: 20160304
  Serious: Yes (Other)
  Sender: FDA-Public Use
  Company Number: PHHY2015TR115042

PATIENT
  Age: 10 Month
  Sex: Female
  Weight: 8.4 kg

DRUGS (3)
  1. MEROPENEM. [Concomitant]
     Active Substance: MEROPENEM
     Indication: SHUNT INFECTION
     Route: 065
  2. VANCOMYCIN [Suspect]
     Active Substance: VANCOMYCIN
     Indication: SHUNT INFECTION
     Route: 065
  3. CEFTRIAXONE. [Concomitant]
     Active Substance: CEFTRIAXONE
     Indication: SHUNT INFECTION
     Route: 065

REACTIONS (2)
  - Pathogen resistance [Recovering/Resolving]
  - Bone marrow failure [Unknown]
